FAERS Safety Report 12459057 (Version 3)
Quarter: 2017Q1

REPORT INFORMATION
  Report Type: Report from Study
  Country: JP (occurrence: JP)
  Receive Date: 20160613
  Receipt Date: 20170210
  Transmission Date: 20170428
  Serious: Yes (Life-Threatening, Hospitalization, Disabling)
  Sender: FDA-Public Use
  Company Number: JP-TAKEDA-2016TUS009888

PATIENT
  Age: 73 Year
  Sex: Male
  Weight: 65 kg

DRUGS (6)
  1. LIPITOR [Concomitant]
     Active Substance: ATORVASTATIN CALCIUM
     Indication: HYPERCHOLESTEROLAEMIA
     Dosage: 5 MG, QD
     Route: 048
     Dates: start: 20140414, end: 20150823
  2. PLETAAL [Concomitant]
     Active Substance: CILOSTAZOL
     Indication: BRADYCARDIA
     Dosage: 50 MG, BID
     Route: 048
     Dates: start: 20150316
  3. RABEPRAZOLE NA [Concomitant]
     Active Substance: RABEPRAZOLE SODIUM
     Indication: GASTROOESOPHAGEAL REFLUX DISEASE
     Dosage: 10 MG, QD
     Route: 048
  4. FEBUXOSTAT. [Suspect]
     Active Substance: FEBUXOSTAT
     Indication: HYPERURICAEMIA
     Dosage: 10 MG, QD
     Route: 048
     Dates: start: 20131118, end: 20151001
  5. MYSLEE [Concomitant]
     Active Substance: ZOLPIDEM TARTRATE
     Indication: INSOMNIA
     Dosage: 10 MG, QD
     Route: 048
     Dates: start: 20131114
  6. EXFORGE [Concomitant]
     Active Substance: AMLODIPINE BESYLATE\VALSARTAN
     Indication: HYPERTENSION
     Dosage: 1 DF, QD
     Route: 048
     Dates: end: 20150823

REACTIONS (4)
  - Glucose tolerance impaired [Not Recovered/Not Resolved]
  - Protein urine [Unknown]
  - Atrioventricular block complete [Not Recovered/Not Resolved]
  - Glucose urine [Unknown]

NARRATIVE: CASE EVENT DATE: 20150511
